FAERS Safety Report 11869160 (Version 5)
Quarter: 2016Q2

REPORT INFORMATION
  Report Type: Spontaneous
  Country: JP (occurrence: JP)
  Receive Date: 20151226
  Receipt Date: 20160427
  Transmission Date: 20160815
  Serious: Yes (Death, Hospitalization)
  Sender: FDA-Public Use
  Company Number: JP-AMGEN-JPNSP2015138940

PATIENT
  Age: 7 Decade
  Sex: Male
  Weight: 52 kg

DRUGS (23)
  1. G-LASTA [Suspect]
     Active Substance: PEGFILGRASTIM
     Indication: PRODUCT USED FOR UNKNOWN INDICATION
     Dosage: 3.6 MG, QD
     Route: 058
     Dates: start: 20151210, end: 20151210
  2. LEVOFOLINATE [Suspect]
     Active Substance: LEVOLEUCOVORIN CALCIUM
     Dosage: 300 MG, QD
     Route: 041
     Dates: start: 20151117
  3. OXINORM                            /00045603/ [Concomitant]
     Active Substance: OXYCODONE HYDROCHLORIDE
     Dosage: 2.5 MG, PRN
     Route: 048
     Dates: start: 20151201
  4. 5-FU                               /00098801/ [Suspect]
     Active Substance: FLUOROURACIL
     Dosage: 3700 MG, QD
     Route: 041
     Dates: start: 20151208
  5. LEVOFOLINATE [Suspect]
     Active Substance: LEVOLEUCOVORIN CALCIUM
     Dosage: 300 MG, QD
     Route: 041
     Dates: start: 20151208
  6. AVASTIN [Suspect]
     Active Substance: BEVACIZUMAB
     Dosage: 259 MG, QD
     Route: 041
     Dates: start: 20151117
  7. OXYCONTIN [Concomitant]
     Active Substance: OXYCODONE HYDROCHLORIDE
     Dosage: 5 MG, BID
     Route: 048
     Dates: start: 20151208
  8. DEXART [Suspect]
     Active Substance: DEXAMETHASONE SODIUM PHOSPHATE
     Dosage: 9.9 MG, QD
     Route: 041
     Dates: start: 20151117
  9. AVASTIN [Suspect]
     Active Substance: BEVACIZUMAB
     Indication: PRODUCT USED FOR UNKNOWN INDICATION
     Dosage: 259 MG, QD
     Route: 041
     Dates: start: 20151020
  10. AVASTIN [Suspect]
     Active Substance: BEVACIZUMAB
     Dosage: 259 MG, QD
     Route: 041
     Dates: start: 20151208
  11. FILGRASTIM RECOMBINANT [Concomitant]
     Dosage: 75 MUG, SINGLE
     Route: 065
     Dates: start: 20151217, end: 20151217
  12. LOXOPROFEN NA [Concomitant]
     Active Substance: LOXOPROFEN SODIUM
     Dosage: 60 MG, TID
     Route: 048
  13. DEXART [Suspect]
     Active Substance: DEXAMETHASONE SODIUM PHOSPHATE
     Indication: PRODUCT USED FOR UNKNOWN INDICATION
     Dosage: 9.9 MG, QD
     Route: 041
     Dates: start: 20151020
  14. KYTRIL [Suspect]
     Active Substance: GRANISETRON HYDROCHLORIDE
     Indication: PRODUCT USED FOR UNKNOWN INDICATION
     Dosage: 3 MG, QD
     Route: 041
     Dates: start: 20151020
  15. CAMPTO [Suspect]
     Active Substance: IRINOTECAN
     Dosage: 230 MG, QD
     Route: 041
     Dates: start: 20151117
  16. METFORMIN HYDROCHLORIDE. [Concomitant]
     Active Substance: METFORMIN HYDROCHLORIDE
     Dosage: 200 MG, BID
     Route: 048
  17. 5-FU                               /00098801/ [Suspect]
     Active Substance: FLUOROURACIL
     Dosage: 3700 MG, QD
     Route: 041
     Dates: start: 20151117
  18. CAMPTO [Suspect]
     Active Substance: IRINOTECAN
     Dosage: 230 MG, QD
     Route: 041
     Dates: start: 20151208
  19. LEVOFOLINATE [Suspect]
     Active Substance: LEVOLEUCOVORIN CALCIUM
     Indication: COLON CANCER
     Dosage: 310 MG, QD
     Route: 041
     Dates: start: 20151020
  20. FILGRASTIM RECOMBINANT [Concomitant]
     Dosage: 150 MUG, QD
     Route: 058
     Dates: start: 20151201, end: 20151201
  21. 5-FU                               /00098801/ [Suspect]
     Active Substance: FLUOROURACIL
     Indication: COLON CANCER
     Dosage: 3700 MG, QD
     Route: 041
     Dates: start: 20151020
  22. DEXART [Suspect]
     Active Substance: DEXAMETHASONE SODIUM PHOSPHATE
     Dosage: 9.9 MG, QD
     Route: 041
     Dates: start: 20151208
  23. CAMPTO [Suspect]
     Active Substance: IRINOTECAN
     Indication: COLON CANCER
     Dosage: 270 MG, QD
     Route: 041
     Dates: start: 20151020

REACTIONS (5)
  - Pyrexia [Not Recovered/Not Resolved]
  - Pneumonia [Not Recovered/Not Resolved]
  - Off label use [Unknown]
  - Infection [Fatal]
  - Febrile neutropenia [Recovered/Resolved]

NARRATIVE: CASE EVENT DATE: 20151104
